FAERS Safety Report 7794024-4 (Version None)
Quarter: 2011Q4

REPORT INFORMATION
  Report Type: 
  Country: None (occurrence: None)
  Receive Date: 20111004
  Receipt Date: 20110923
  Transmission Date: 20120403
  Serious: Yes (Hospitalization, Other)
  Sender: FDA-Public Use
  Company Number: AU-AMGEN-AUSSP2011049740

PATIENT
  Sex: Female

DRUGS (2)
  1. AMPHETAMINE SULFATE [Suspect]
     Dosage: UNK
     Route: 042
  2. ENBREL [Suspect]
     Indication: PRODUCT USED FOR UNKNOWN INDICATION
     Dosage: UNK

REACTIONS (1)
  - CONGESTIVE CARDIOMYOPATHY [None]
